FAERS Safety Report 10684454 (Version 2)
Quarter: 2015Q1

REPORT INFORMATION
  Report Type: Spontaneous
  Country: US (occurrence: None)
  Receive Date: 20141229
  Receipt Date: 20150120
  Transmission Date: 20150720
  Serious: Yes (Hospitalization)
  Sender: FDA-Public Use
  Company Number: 2014-US-016707

PATIENT
  Age: 41 Year
  Sex: Female
  Weight: 54.4 kg

DRUGS (16)
  1. XYREM [Suspect]
     Active Substance: SODIUM OXYBATE
     Indication: NARCOLEPSY
     Dosage: DOSE ADJUSTMENTS, ORAL
     Route: 048
     Dates: start: 201401, end: 2014
  2. LASIX [Concomitant]
     Active Substance: FUROSEMIDE
  3. NITROGLYCERINE (GLYCERYL TRINITRATE) [Concomitant]
  4. LEXAPRO [Concomitant]
     Active Substance: ESCITALOPRAM OXALATE
  5. OMEPRAZOLE. [Concomitant]
     Active Substance: OMEPRAZOLE
  6. FENTANYL. [Concomitant]
     Active Substance: FENTANYL
  7. CARAFATE [Concomitant]
     Active Substance: SUCRALFATE
  8. ZETIA(EZETIMIBE) [Concomitant]
  9. TRILEPTAL [Concomitant]
     Active Substance: OXCARBAZEPINE
  10. TRIAZOLAM. [Concomitant]
     Active Substance: TRIAZOLAM
  11. OXYOCODONE [Concomitant]
  12. DICYCLOMINE [Concomitant]
     Active Substance: DICYCLOMINE HYDROCHLORIDE
  13. LEVOTHYROXINE [Concomitant]
     Active Substance: LEVOTHYROXINE
  14. XYREM [Suspect]
     Active Substance: SODIUM OXYBATE
     Indication: CATAPLEXY
     Dosage: DOSE ADJUSTMENTS, ORAL
     Route: 048
     Dates: start: 201401, end: 2014
  15. XARELTO [Concomitant]
     Active Substance: RIVAROXABAN
  16. NUVIGIL [Concomitant]
     Active Substance: ARMODAFINIL

REACTIONS (11)
  - Thrombosis [None]
  - Volvulus [None]
  - Diarrhoea [None]
  - Balance disorder [None]
  - Fall [None]
  - Splenic thrombosis [None]
  - Short-bowel syndrome [None]
  - Head injury [None]
  - Heart rate decreased [None]
  - Hand fracture [None]
  - Janus kinase 2 mutation [None]

NARRATIVE: CASE EVENT DATE: 201404
